FAERS Safety Report 5573639-8 (Version None)
Quarter: 2007Q4

REPORT INFORMATION
  Report Type: 
  Country: None (occurrence: None)
  Receive Date: 20071226
  Receipt Date: 20071212
  Transmission Date: 20080405
  Serious: Yes (Hospitalization)
  Sender: FDA-Public Use
  Company Number: US-AMGEN-QUU256599

PATIENT
  Sex: Female

DRUGS (4)
  1. ENBREL [Suspect]
     Indication: RHEUMATOID ARTHRITIS
     Route: 058
     Dates: start: 20030101
  2. REMICADE [Suspect]
     Dates: start: 20070827, end: 20070912
  3. HUMIRA [Suspect]
     Dates: start: 20070517, end: 20070614
  4. SULFASALAZINE [Concomitant]
     Dates: start: 20070301

REACTIONS (7)
  - ADVERSE DRUG REACTION [None]
  - BLOOD IMMUNOGLOBULIN G DECREASED [None]
  - BLOOD IMMUNOGLOBULIN M DECREASED [None]
  - BLOOD PRESSURE INCREASED [None]
  - LIVER FUNCTION TEST ABNORMAL [None]
  - RESPIRATION ABNORMAL [None]
  - SINUSITIS [None]
